FAERS Safety Report 13427834 (Version 1)
Quarter: 2017Q2

REPORT INFORMATION
  Report Type: Spontaneous
  Country: AT (occurrence: AT)
  Receive Date: 20170411
  Receipt Date: 20170411
  Transmission Date: 20170830
  Serious: Yes (Death, Hospitalization)
  Sender: FDA-Public Use
  Company Number: AT-DSJP-DSE-2017-111167

PATIENT

DRUGS (1)
  1. LIXIANA [Suspect]
     Active Substance: EDOXABAN TOSYLATE
     Indication: DEEP VEIN THROMBOSIS
     Dosage: 60 MG, QD
     Route: 048
     Dates: start: 201701, end: 201701

REACTIONS (4)
  - Carotid artery stenosis [Fatal]
  - Thrombotic stroke [Fatal]
  - Brain oedema [Fatal]
  - Carotid artery thrombosis [Fatal]

NARRATIVE: CASE EVENT DATE: 201701
